FAERS Safety Report 12586764 (Version 1)
Quarter: 2016Q3

REPORT INFORMATION
  Report Type: Spontaneous
  Country: US (occurrence: None)
  Receive Date: 20160722
  Receipt Date: 20160722
  Transmission Date: 20161109
  Serious: No
  Sender: FDA-Public Use
  Company Number: None

PATIENT
  Age: 25 Year
  Sex: Female

DRUGS (2)
  1. KARIVA [Concomitant]
     Active Substance: DESOGESTREL\ETHINYL ESTRADIOL
  2. SPRYCEL [Suspect]
     Active Substance: DASATINIB
     Indication: CHRONIC LEUKAEMIA
     Route: 048
     Dates: start: 20160719

REACTIONS (2)
  - Cold sweat [None]
  - Nausea [None]

NARRATIVE: CASE EVENT DATE: 201607
